FAERS Safety Report 5488721-3 (Version None)
Quarter: 2007Q4

REPORT INFORMATION
  Report Type: 
  Country: None (occurrence: None)
  Receive Date: 20071017
  Receipt Date: 20071005
  Transmission Date: 20080405
  Serious: Yes (Other)
  Sender: FDA-Public Use
  Company Number: BR-PFIZER INC-2007022287

PATIENT
  Sex: Female
  Weight: 58 kg

DRUGS (1)
  1. DOSTINEX [Suspect]
     Indication: PITUITARY TUMOUR BENIGN
     Route: 048

REACTIONS (6)
  - ALOPECIA [None]
  - BLOOD PROLACTIN INCREASED [None]
  - CARDIOVASCULAR DISORDER [None]
  - HAIR TEXTURE ABNORMAL [None]
  - NAIL DISORDER [None]
  - PRURITUS [None]
